FAERS Safety Report 19088620 (Version 2)
Quarter: 2021Q2

REPORT INFORMATION
  Report Type: Report from Study
  Country: IT (occurrence: IT)
  Receive Date: 20210402
  Receipt Date: 20210422
  Transmission Date: 20210717
  Serious: Yes (Other)
  Sender: FDA-Public Use
  Company Number: IT-INCYTE CORPORATION-2021IN002723

PATIENT

DRUGS (5)
  1. JAKAVI [Suspect]
     Active Substance: RUXOLITINIB
     Dosage: 40 UNK DAILY
     Route: 048
     Dates: start: 20170925, end: 20171113
  2. ACETYLSALICYLIC ACID [Concomitant]
     Active Substance: ASPIRIN
     Indication: PRODUCT USED FOR UNKNOWN INDICATION
     Dosage: 100 MG, BID
     Route: 065
     Dates: start: 201010, end: 20180307
  3. JAKAVI [Suspect]
     Active Substance: RUXOLITINIB
     Indication: MYELOFIBROSIS
     Dosage: 40 UNK DAILY
     Route: 048
     Dates: start: 20170407, end: 20170727
  4. JAKAVI [Suspect]
     Active Substance: RUXOLITINIB
     Dosage: 30 UNK DAILY
     Route: 048
     Dates: start: 20171114
  5. JAKAVI [Suspect]
     Active Substance: RUXOLITINIB
     Dosage: 20 UNK DAILY
     Route: 048
     Dates: start: 20170728, end: 20170924

REACTIONS (3)
  - Anaemia [Unknown]
  - Thrombocytopenia [Not Recovered/Not Resolved]
  - Leukopenia [Not Recovered/Not Resolved]

NARRATIVE: CASE EVENT DATE: 20201210
